FAERS Safety Report 7631609-X (Version None)
Quarter: 2011Q3

REPORT INFORMATION
  Report Type: 
  Country: None (occurrence: None)
  Receive Date: 20110725
  Receipt Date: 20110119
  Transmission Date: 20111222
  Serious: No
  Sender: FDA-Public Use
  Company Number: US-BRISTOL-MYERS SQUIBB COMPANY-15498181

PATIENT
  Age: 80 Year
  Sex: Male

DRUGS (7)
  1. LASIX [Concomitant]
  2. METOPROLOL TARTRATE [Concomitant]
     Dosage: METOPROLOL ER
  3. COUMADIN [Suspect]
     Dosage: THERAPY:FOR A YEAR
  4. DIGOXIN [Concomitant]
  5. VITAMIN TAB [Concomitant]
  6. NITROGLYCERIN [Concomitant]
  7. CRESTOR [Concomitant]

REACTIONS (2)
  - DECREASED APPETITE [None]
  - WEIGHT DECREASED [None]
